FAERS Safety Report 25380109 (Version 1)
Quarter: 2025Q2

REPORT INFORMATION
  Report Type: Spontaneous
  Country: IR (occurrence: IR)
  Receive Date: 20250530
  Receipt Date: 20250530
  Transmission Date: 20250716
  Serious: Yes (Life-Threatening, Hospitalization, Other)
  Sender: SCIEGEN PHARMACEUTICALS INC
  Company Number: IR-SCIEGENP-2025SCLIT00122

PATIENT
  Age: 17 Year
  Sex: Female

DRUGS (2)
  1. AMLODIPINE BESYLATE [Suspect]
     Active Substance: AMLODIPINE BESYLATE
     Indication: Product used for unknown indication
     Route: 065
  2. PROPRANOLOL [Suspect]
     Active Substance: PROPRANOLOL HYDROCHLORIDE
     Indication: Product used for unknown indication
     Route: 065

REACTIONS (6)
  - Non-cardiogenic pulmonary oedema [Recovered/Resolved]
  - Acute kidney injury [Recovered/Resolved]
  - Multiple organ dysfunction syndrome [Recovered/Resolved]
  - Suicide attempt [Unknown]
  - Shock [Recovered/Resolved]
  - Intentional overdose [Recovered/Resolved]
